FAERS Safety Report 9302598 (Version 1)
Quarter: 2013Q2

REPORT INFORMATION
  Report Type: Spontaneous
  Country: US (occurrence: US)
  Receive Date: 20130522
  Receipt Date: 20130522
  Transmission Date: 20140414
  Serious: Yes (Other)
  Sender: FDA-Public Use
  Company Number: US-SANOFI-AVENTIS-2013SA050720

PATIENT
  Sex: Female

DRUGS (3)
  1. LANTUS SOLOSTAR [Suspect]
     Indication: LATENT AUTOIMMUNE DIABETES IN ADULTS
     Dosage: 5-6 UNITS
     Dates: start: 201209
  2. SOLOSTAR [Suspect]
     Indication: LATENT AUTOIMMUNE DIABETES IN ADULTS
     Dates: start: 201209
  3. METFORMIN [Concomitant]

REACTIONS (5)
  - Loss of consciousness [Unknown]
  - Blood glucose decreased [Unknown]
  - Glycosylated haemoglobin increased [Unknown]
  - Expired drug administered [Unknown]
  - Incorrect storage of drug [Unknown]
